FAERS Safety Report 8296695-5 (Version None)
Quarter: 2012Q2

REPORT INFORMATION
  Report Type: 
  Country: None (occurrence: None)
  Receive Date: 20120418
  Receipt Date: 20120321
  Transmission Date: 20120825
  Serious: Yes (Other)
  Sender: FDA-Public Use
  Company Number: FI-BAXTER-2012BAX000410

PATIENT
  Sex: Male

DRUGS (4)
  1. NUMETA G13E [Suspect]
     Route: 042
     Dates: start: 20120220
  2. CUROSURF [Suspect]
  3. TOMYCIN [Concomitant]
  4. PENICILLIN G [Concomitant]

REACTIONS (5)
  - DRUG ADMINISTERED AT INAPPROPRIATE SITE [None]
  - FLUID RETENTION [None]
  - PULMONARY HAEMORRHAGE [None]
  - SWELLING [None]
  - INJECTION SITE SWELLING [None]
